FAERS Safety Report 9474122 (Version 2)
Quarter: 2013Q3

REPORT INFORMATION
  Report Type: Spontaneous
  Country: AT (occurrence: AT)
  Receive Date: 20130823
  Receipt Date: 20130823
  Transmission Date: 20140515
  Serious: Yes (Other)
  Sender: FDA-Public Use
  Company Number: PHHY2013AT078883

PATIENT
  Age: 69 Year
  Sex: Female

DRUGS (3)
  1. EXFORGE HCT [Suspect]
     Dosage: 1 DF, BID (VALS 160/ AMLO10/HCTZ12.5MG),
  2. GLUCOPHAGE [Concomitant]
     Dosage: 500 MG, UNK
  3. EBRANTIL [Concomitant]
     Dosage: UNK UKN, UNK

REACTIONS (7)
  - Lyme disease [Unknown]
  - Sleep disorder [Not Recovered/Not Resolved]
  - Urine output decreased [Not Recovered/Not Resolved]
  - Fatigue [Not Recovered/Not Resolved]
  - Arthralgia [Not Recovered/Not Resolved]
  - Blood pressure systolic increased [Unknown]
  - Drug prescribing error [Unknown]
